FAERS Safety Report 23260344 (Version 1)
Quarter: 2023Q4

REPORT INFORMATION
  Report Type: Spontaneous
  Country: US (occurrence: US)
  Receive Date: 20231204
  Receipt Date: 20231204
  Transmission Date: 20240110
  Serious: Yes (Other)
  Sender: FDA-Public Use
  Company Number: US-drreddys-LIT/USA/23/0187589

PATIENT
  Age: 30 Year
  Sex: Female

DRUGS (3)
  1. LEVOTHYROXINE SODIUM [Suspect]
     Active Substance: LEVOTHYROXINE SODIUM
     Indication: Central hypothyroidism
  2. HYDROCORTISONE [Concomitant]
     Active Substance: HYDROCORTISONE
     Indication: Pituitary apoplexy
  3. Unspecified glucocorticoids [Concomitant]
     Indication: Product used for unknown indication

REACTIONS (3)
  - Diabetes insipidus [Unknown]
  - Exposure during pregnancy [Unknown]
  - Polyuria [Recovered/Resolved]
